FAERS Safety Report 7877329-8 (Version None)
Quarter: 2011Q4

REPORT INFORMATION
  Report Type: 
  Country: None (occurrence: None)
  Receive Date: 20111031
  Receipt Date: 20111021
  Transmission Date: 20120403
  Serious: Yes (Hospitalization, Other)
  Sender: FDA-Public Use
  Company Number: US-ASTRAZENECA-2011SE53628

PATIENT
  Age: 71 Year
  Sex: Male

DRUGS (14)
  1. NEURONTIN [Concomitant]
     Dosage: 300 TID
     Dates: start: 20090401
  2. VIT D [Concomitant]
  3. LISINOPRIL [Suspect]
     Route: 048
     Dates: start: 20090422
  4. ATROVENT [Concomitant]
  5. VERAPAMIL [Concomitant]
  6. LEVOTHYROXINE SODIUM [Concomitant]
  7. SYMBICORT [Suspect]
     Route: 055
  8. ALBUTEROL [Concomitant]
  9. MUCINEX [Concomitant]
     Dosage: DAILY PRN
  10. VENDAL [Concomitant]
     Dosage: PRN
  11. O2 [Concomitant]
     Dosage: 2L/NC HS
  12. FOLBEE [Concomitant]
     Dosage: AM
  13. VERAPAMIL [Concomitant]
  14. PRAVASTATIN [Concomitant]

REACTIONS (11)
  - MALAISE [None]
  - MYOCARDIAL INFARCTION [None]
  - HYPERTENSION [None]
  - EMPHYSEMA [None]
  - AUTOIMMUNE THYROIDITIS [None]
  - CHRONIC OBSTRUCTIVE PULMONARY DISEASE [None]
  - CARDIAC DISCOMFORT [None]
  - DIABETIC NEUROPATHY [None]
  - LIPIDS INCREASED [None]
  - CORONARY ARTERY DISEASE [None]
  - NEUROPATHY PERIPHERAL [None]
